FAERS Safety Report 17840172 (Version 5)
Quarter: 2021Q1

REPORT INFORMATION
  Report Type: Spontaneous
  Country: US (occurrence: US)
  Receive Date: 20200529
  Receipt Date: 20210219
  Transmission Date: 20210419
  Serious: No
  Sender: FDA-Public Use
  Company Number: US-VERTEX PHARMACEUTICALS-2020-006654

PATIENT
  Age: 36 Year
  Sex: Male
  Weight: 72 kg

DRUGS (4)
  1. PULMOZYME [Concomitant]
     Active Substance: DORNASE ALFA
  2. TRIKAFTA [Suspect]
     Active Substance: ELEXACAFTOR\IVACAFTOR\TEZACAFTOR
     Dosage: 1 ORANGE TAB IN AM AND 1/2 BLUE TAB IN PM
     Route: 048
     Dates: start: 2020, end: 2020
  3. TRIKAFTA [Suspect]
     Active Substance: ELEXACAFTOR\IVACAFTOR\TEZACAFTOR
     Dosage: 2 ORANGE TABS EVERY OTHER DAY WITH 1 ORANGE TAB EVERY OTHER DAY AND NO BLUE TAB
     Route: 048
     Dates: start: 202008
  4. TRIKAFTA [Suspect]
     Active Substance: ELEXACAFTOR\IVACAFTOR\TEZACAFTOR
     Indication: CYSTIC FIBROSIS
     Dosage: 2 TABS (100 MG ELEXACAFTOR/ 50 MG TEZACAFTOR/ 75 MG IVACAFTOR) AM; 1 TAB (150MG IVACAFTOR) PM
     Route: 048
     Dates: start: 201910, end: 2020

REACTIONS (3)
  - Alanine aminotransferase increased [Recovered/Resolved]
  - Rash [Unknown]
  - Folliculitis [Unknown]

NARRATIVE: CASE EVENT DATE: 202002
